FAERS Safety Report 23516115 (Version 2)
Quarter: 2024Q1

REPORT INFORMATION
  Report Type: Spontaneous
  Country: ES (occurrence: None)
  Receive Date: 20240213
  Receipt Date: 20240308
  Transmission Date: 20240410
  Serious: Yes (Hospitalization, Other)
  Sender: FDA-Public Use
  Company Number: 2024A036132

PATIENT
  Age: 1 Month
  Sex: Male

DRUGS (1)
  1. BEYFORTUS [Suspect]
     Active Substance: NIRSEVIMAB-ALIP
     Indication: Respiratory syncytial virus immunisation
     Dosage: UNK
     Route: 030
     Dates: start: 20231011, end: 20231011

REACTIONS (5)
  - Acute respiratory failure [Recovered/Resolved]
  - Bronchiolitis [Recovered/Resolved]
  - Drug ineffective [Unknown]
  - Rhinovirus infection [Recovered/Resolved]
  - Respiratory syncytial virus infection [Recovered/Resolved]

NARRATIVE: CASE EVENT DATE: 20231111
